FAERS Safety Report 17211486 (Version 1)
Quarter: 2019Q4

REPORT INFORMATION
  Report Type: Spontaneous
  Country: AU (occurrence: AU)
  Receive Date: 20191229
  Receipt Date: 20191229
  Transmission Date: 20200122
  Serious: Yes (Hospitalization, Other)
  Sender: FDA-Public Use
  Company Number: AU-AMGEN-AUSSP2019213878

PATIENT
  Age: 59 Year
  Sex: Male

DRUGS (2)
  1. XGEVA [Suspect]
     Active Substance: DENOSUMAB
     Indication: METASTASES TO BONE
     Dosage: 120 MILLIGRAM
     Route: 065
  2. XGEVA [Suspect]
     Active Substance: DENOSUMAB
     Dosage: 30 MILLIGRAM
     Route: 065

REACTIONS (7)
  - Hypophosphataemia [Unknown]
  - Serum procollagen type I N-terminal propeptide increased [Unknown]
  - Blood alkaline phosphatase increased [Unknown]
  - Hypokalaemia [Unknown]
  - Vitamin D deficiency [Unknown]
  - Tetany [Unknown]
  - Hypocalcaemia [Unknown]
